FAERS Safety Report 21629176 (Version 7)
Quarter: 2023Q4

REPORT INFORMATION
  Report Type: Spontaneous
  Country: US (occurrence: US)
  Receive Date: 20221122
  Receipt Date: 20231114
  Transmission Date: 20240109
  Serious: No
  Sender: FDA-Public Use
  Company Number: US-SA-SAC20221117000651

PATIENT
  Sex: Male

DRUGS (2)
  1. DUPIXENT [Suspect]
     Active Substance: DUPILUMAB
     Indication: Dermatitis allergic
     Dosage: 600 MG, 1X
     Route: 058
     Dates: start: 20221104, end: 20221104
  2. DUPIXENT [Suspect]
     Active Substance: DUPILUMAB
     Indication: Dermatitis atopic
     Dosage: 300 MG, QOW, MAINTENANCE DOSE
     Route: 058
     Dates: start: 202211

REACTIONS (5)
  - Dry skin [Not Recovered/Not Resolved]
  - Skin irritation [Unknown]
  - Skin exfoliation [Not Recovered/Not Resolved]
  - Erythema [Unknown]
  - Rash erythematous [Unknown]
